FAERS Safety Report 6397100-6 (Version None)
Quarter: 2009Q4

REPORT INFORMATION
  Report Type: 
  Country: None (occurrence: None)
  Receive Date: 20091012
  Receipt Date: 20091005
  Transmission Date: 20100525
  Serious: Yes (Hospitalization, Congenital Anomaly)
  Sender: FDA-Public Use
  Company Number: A0664388A

PATIENT
  Sex: Male

DRUGS (4)
  1. PAXIL [Suspect]
     Indication: DEPRESSION
     Dosage: 20MG PER DAY
     Dates: start: 20010101, end: 20030901
  2. NAPROXEN [Concomitant]
     Dates: start: 20011201, end: 20050501
  3. AMRIX [Concomitant]
     Dates: start: 20020901, end: 20050501
  4. VITAMIN TAB [Concomitant]
     Dates: start: 20021201, end: 20030601

REACTIONS (27)
  - AORTIC STENOSIS [None]
  - AORTIC VALVE INCOMPETENCE [None]
  - ATRIAL SEPTAL DEFECT [None]
  - BLOOD PRESSURE INCREASED [None]
  - BUNDLE BRANCH BLOCK RIGHT [None]
  - CARDIAC MURMUR [None]
  - CARDIOMEGALY [None]
  - COUGH [None]
  - DRUG EXPOSURE DURING PREGNANCY [None]
  - FAT NECROSIS [None]
  - HYPOPHAGIA [None]
  - INFUSION SITE EXTRAVASATION [None]
  - LEFT ATRIAL DILATATION [None]
  - LEFT VENTRICULAR HYPERTROPHY [None]
  - LUNG HYPERINFLATION [None]
  - MITRAL VALVE INCOMPETENCE [None]
  - PATENT DUCTUS ARTERIOSUS [None]
  - PERICARDIAL EFFUSION [None]
  - PULMONARY ARTERY STENOSIS [None]
  - PULMONARY VALVE INCOMPETENCE [None]
  - RIGHT VENTRICULAR HYPERTROPHY [None]
  - SCAR [None]
  - TRANSPOSITION OF THE GREAT VESSELS [None]
  - TRICUSPID VALVE INCOMPETENCE [None]
  - VEIN DISORDER [None]
  - WHEEZING [None]
  - WOUND INFECTION [None]
